FAERS Safety Report 6620323-5 (Version None)
Quarter: 2010Q1

REPORT INFORMATION
  Report Type: 
  Country: None (occurrence: None)
  Receive Date: 20100309
  Receipt Date: 20100225
  Transmission Date: 20100710
  Serious: Yes (Hospitalization)
  Sender: FDA-Public Use
  Company Number: IT-PFIZER INC-2007012781

PATIENT
  Age: 69 Year
  Sex: Female
  Weight: 63.5 kg

DRUGS (8)
  1. SUNITINIB MALATE [Suspect]
     Indication: RENAL CELL CARCINOMA
     Dosage: 37.5 MG, EVERY DAY
     Route: 048
     Dates: start: 20060921, end: 20070209
  2. MAGALDRATE [Concomitant]
  3. RIFACOL [Concomitant]
  4. NORVASC [Concomitant]
     Indication: HYPERTENSION
     Dosage: 5 MG, DAILY
     Route: 048
     Dates: start: 20061011
  5. TRIATEC [Concomitant]
     Indication: HYPERTENSION
     Dosage: 5 MG, DAILY
     Route: 048
     Dates: start: 20061011
  6. MAALOX [Concomitant]
     Dates: start: 20061019, end: 20061102
  7. ESOMEPRAZOLE [Concomitant]
     Indication: GASTRITIS PROPHYLAXIS
     Dosage: 20 MG, DAILY
     Route: 048
     Dates: start: 20070210
  8. TORADOL [Concomitant]
     Indication: PAIN
     Dosage: DAILY
     Route: 042
     Dates: start: 20070210, end: 20070213

REACTIONS (8)
  - CONCUSSION [None]
  - DIARRHOEA [None]
  - FALL [None]
  - MUCOSAL INFLAMMATION [None]
  - NAUSEA [None]
  - PLATELET COUNT DECREASED [None]
  - PRESYNCOPE [None]
  - VOMITING [None]
